FAERS Safety Report 18518502 (Version 4)
Quarter: 2021Q1

REPORT INFORMATION
  Report Type: Report from Study
  Country: PL (occurrence: PL)
  Receive Date: 20201118
  Receipt Date: 20210202
  Transmission Date: 20210419
  Serious: Yes (Hospitalization)
  Sender: FDA-Public Use
  Company Number: PL-JNJFOC-20201111713

PATIENT
  Age: 52 Year
  Sex: Female

DRUGS (27)
  1. ADALIMUMAB [Suspect]
     Active Substance: ADALIMUMAB
     Indication: CROHN^S DISEASE
     Route: 058
     Dates: start: 20191127
  2. ENCORTON                           /00044701/ [Concomitant]
     Active Substance: PREDNISONE
     Indication: CROHN^S DISEASE
     Route: 065
     Dates: start: 20200103, end: 20200106
  3. PYRALGINUM [Concomitant]
     Active Substance: METAMIZOLE SODIUM
     Dates: start: 20200123, end: 20200129
  4. VITAMINE B12 [Concomitant]
     Active Substance: CYANOCOBALAMIN
     Dates: start: 20200108, end: 20200121
  5. IPP [OMEPRAZOLE] [Concomitant]
     Active Substance: OMEPRAZOLE
     Dates: start: 20200108, end: 20200115
  6. BIOPRAZOL [Concomitant]
     Dates: start: 20200116, end: 20200309
  7. OPTILYTE [Concomitant]
     Active Substance: CALCIUM CHLORIDE\MAGNESIUM CHLORIDE\POTASSIUM CHLORIDE\SODIUM ACETATE\SODIUM CHLORIDE\SODIUM CITRATE
     Dates: start: 20200103, end: 20200107
  8. NO?SPA FORTE [Concomitant]
     Active Substance: DROTAVERINE HYDROCHLORIDE
     Dates: start: 20191130
  9. CALPEROS [CALCIUM CARBONATE] [Concomitant]
     Active Substance: CALCIUM CARBONATE
     Dates: start: 20200108, end: 20200604
  10. DROTAVERINE HYDROCHLORIDE [Concomitant]
     Active Substance: DROTAVERINE HYDROCHLORIDE
     Indication: CROHN^S DISEASE
     Route: 065
     Dates: start: 20191130
  11. IRON ISOMALTOSIDE 1000 [Concomitant]
     Active Substance: IRON ISOMALTOSIDE 1000
     Dates: start: 20200108, end: 20200115
  12. LACTULOSE. [Concomitant]
     Active Substance: LACTULOSE
     Dates: start: 20200108, end: 20200120
  13. GLUCOSE [Concomitant]
     Active Substance: DEXTROSE
     Dates: start: 20200123, end: 20200129
  14. IBUPROFEN. [Concomitant]
     Active Substance: IBUPROFEN
     Indication: CROHN^S DISEASE
     Route: 065
     Dates: start: 20191225
  15. ENCORTON                           /00044701/ [Concomitant]
     Active Substance: PREDNISONE
     Route: 065
     Dates: start: 20200704
  16. KCL [Concomitant]
     Active Substance: POTASSIUM CHLORIDE
     Dates: start: 20200108, end: 20200108
  17. IBUM SUPERMAX [Concomitant]
     Indication: CROHN^S DISEASE
     Dates: start: 20191225
  18. FRAXIPARINA [Concomitant]
     Active Substance: NADROPARIN CALCIUM
     Dates: start: 20200207, end: 20200216
  19. EMANERA [Concomitant]
     Active Substance: ESOMEPRAZOLE MAGNESIUM
     Dates: start: 20190321, end: 20191223
  20. SORBIFER DURULES [FERROUS SULFATE] [Concomitant]
     Dates: start: 20200610, end: 20200615
  21. METRONIDAZOLE. [Concomitant]
     Active Substance: METRONIDAZOLE
     Indication: CROHN^S DISEASE
     Route: 065
     Dates: start: 20200123, end: 20200703
  22. NACL [Concomitant]
     Active Substance: SODIUM CHLORIDE
     Dates: start: 20200103, end: 20200107
  23. KALDYUM [Concomitant]
     Active Substance: POTASSIUM CHLORIDE
     Indication: CROHN^S DISEASE
     Route: 065
     Dates: start: 20200704
  24. PROXACIN [CIPROFLOXACIN] [Concomitant]
     Dates: start: 20200625, end: 20200703
  25. KALIPOZ [Concomitant]
     Active Substance: POTASSIUM CHLORIDE
     Dates: start: 20200625, end: 20200703
  26. BIOTRAXON [Concomitant]
     Dates: start: 20200123, end: 20200206
  27. BUSCOLIC COMPOSITUM [Concomitant]
     Dates: start: 20200103, end: 20200107

REACTIONS (1)
  - Pulmonary tuberculosis [Recovered/Resolved]

NARRATIVE: CASE EVENT DATE: 20201105
